FAERS Safety Report 13776771 (Version 2)
Quarter: 2017Q3

REPORT INFORMATION
  Report Type: Spontaneous
  Country: US (occurrence: US)
  Receive Date: 20170720
  Receipt Date: 20170721
  Transmission Date: 20171127
  Serious: Yes (Other)
  Sender: FDA-Public Use
  Company Number: US-BAUSCH-BL-2017-021666

PATIENT
  Age: 67 Year
  Sex: Female

DRUGS (9)
  1. LOTEMAX [Suspect]
     Active Substance: LOTEPREDNOL ETABONATE
     Dosage: DOSE WAS TAPPERED
     Route: 047
     Dates: start: 2017
  2. AZATHIOPRINE. [Concomitant]
     Active Substance: AZATHIOPRINE
     Indication: PRODUCT USED FOR UNKNOWN INDICATION
     Dosage: STARTED YEARS PRIOR TO THIS REPORT
  3. LOTEMAX [Suspect]
     Active Substance: LOTEPREDNOL ETABONATE
     Indication: SJOGREN^S SYNDROME
     Dosage: DOSE WAS TAPPERED
     Route: 047
     Dates: start: 2017
  4. PILOCARPINE. [Concomitant]
     Active Substance: PILOCARPINE
     Indication: PRODUCT USED FOR UNKNOWN INDICATION
     Dosage: STARTED YEARS PRIOR TO THIS REPORT
  5. LOTEMAX [Suspect]
     Active Substance: LOTEPREDNOL ETABONATE
     Indication: IMMUNE SYSTEM DISORDER
     Route: 047
     Dates: start: 2016
  6. HYDROXYCHLOROQUINE [Concomitant]
     Active Substance: HYDROXYCHLOROQUINE
     Indication: PRODUCT USED FOR UNKNOWN INDICATION
     Dosage: STARTED YEARS PRIOR TO THIS REPORT
  7. LOTEMAX [Suspect]
     Active Substance: LOTEPREDNOL ETABONATE
     Indication: DRY EYE
     Dosage: DOSE WAS TAPPERED
     Route: 047
     Dates: start: 2017
  8. LOTEMAX [Suspect]
     Active Substance: LOTEPREDNOL ETABONATE
     Indication: INFLAMMATION
     Dosage: DOSE WAS TAPPERED
     Route: 047
     Dates: start: 2017
  9. LOTEMAX [Suspect]
     Active Substance: LOTEPREDNOL ETABONATE
     Indication: AUTOIMMUNE DISORDER
     Route: 047
     Dates: start: 201702

REACTIONS (2)
  - Off label use [Not Recovered/Not Resolved]
  - Eye disorder [Unknown]

NARRATIVE: CASE EVENT DATE: 2016
